FAERS Safety Report 5421970-9 (Version None)
Quarter: 2007Q3

REPORT INFORMATION
  Report Type: 
  Country: None (occurrence: None)
  Receive Date: 20070822
  Receipt Date: 20070808
  Transmission Date: 20080115
  Serious: Yes (Death, Life-Threatening, Hospitalization)
  Sender: FDA-Public Use
  Company Number: FR-BAYER-200710481BFR

PATIENT
  Age: 77 Year
  Sex: Female

DRUGS (10)
  1. CIPROFLOXACIN HCL [Suspect]
     Indication: INFECTION
     Dosage: TOTAL DAILY DOSE: 800 MG  UNIT DOSE: 400 MG
     Route: 042
     Dates: end: 20070617
  2. SINTROM [Suspect]
     Indication: ATRIAL FIBRILLATION
     Dosage: TOTAL DAILY DOSE: 4 MG  UNIT DOSE: 4 MG
     Route: 048
     Dates: start: 20070612, end: 20070614
  3. KARDEGIC [Suspect]
     Indication: UNEVALUABLE EVENT
     Dosage: UNIT DOSE: 75 MG
     Route: 048
     Dates: start: 20070501, end: 20070614
  4. TAHOR [Suspect]
     Indication: UNEVALUABLE EVENT
     Dosage: TOTAL DAILY DOSE: 40 MG  UNIT DOSE: 40 MG
     Route: 048
  5. CORDARONE [Suspect]
     Indication: ATRIAL FIBRILLATION
     Dosage: TOTAL DAILY DOSE: 200 MG  UNIT DOSE: 200 MG
     Route: 048
     Dates: start: 20070501, end: 20070717
  6. TAZOCILLINE [Suspect]
     Indication: INFECTION
     Dosage: TOTAL DAILY DOSE: 12 G  UNIT DOSE: 4 G
     Route: 042
     Dates: start: 20070611, end: 20070617
  7. TARDYFERON [Concomitant]
     Indication: UNEVALUABLE EVENT
     Route: 048
  8. LEVOCARNIL [Concomitant]
     Indication: UNEVALUABLE EVENT
     Dosage: TOTAL DAILY DOSE: 4500 MG  UNIT DOSE: 1500 MG
     Route: 042
  9. CARDENSIEL [Concomitant]
     Indication: UNEVALUABLE EVENT
     Route: 048
  10. LASIX [Concomitant]
     Indication: UNEVALUABLE EVENT
     Route: 042

REACTIONS (4)
  - ANAEMIA [None]
  - PULMONARY ALVEOLAR HAEMORRHAGE [None]
  - PUNCTURE SITE HAEMORRHAGE [None]
  - RENAL FAILURE [None]
